FAERS Safety Report 8798041 (Version 2)
Quarter: 2015Q1

REPORT INFORMATION
  Report Type: Report from Study
  Country: US (occurrence: US)
  Receive Date: 20120919
  Receipt Date: 20150323
  Transmission Date: 20150721
  Serious: Yes (Death)
  Sender: FDA-Public Use
  Company Number: US-ROCHE-1126047

PATIENT
  Sex: Female

DRUGS (6)
  1. AVASTIN [Suspect]
     Active Substance: BEVACIZUMAB
     Indication: MALIGNANT RESPIRATORY TRACT NEOPLASM
     Route: 065
  2. XELODA [Concomitant]
     Active Substance: CAPECITABINE
     Route: 065
  3. AVASTIN [Suspect]
     Active Substance: BEVACIZUMAB
     Indication: METASTASES TO LIVER
  4. FLUOROURACIL. [Concomitant]
     Active Substance: FLUOROURACIL
  5. LEUCOVORIN [Concomitant]
     Active Substance: LEUCOVORIN
  6. MITOMYCIN. [Concomitant]
     Active Substance: MITOMYCIN

REACTIONS (2)
  - Death [Fatal]
  - Off label use [Unknown]
